FAERS Safety Report 8577644-9 (Version None)
Quarter: 2012Q3

REPORT INFORMATION
  Report Type: 
  Country: None (occurrence: None)
  Receive Date: 20120807
  Receipt Date: 20120730
  Transmission Date: 20120928
  Serious: Yes (Other)
  Sender: FDA-Public Use
  Company Number: US-FRI-1000037451

PATIENT
  Sex: Male

DRUGS (1)
  1. DALIRESP [Suspect]
     Route: 048
     Dates: start: 20120501

REACTIONS (2)
  - ANGER [None]
  - MENTAL STATUS CHANGES [None]
